FAERS Safety Report 6888585-7 (Version None)
Quarter: 2010Q3

REPORT INFORMATION
  Report Type: 
  Country: None (occurrence: None)
  Receive Date: 20100730
  Receipt Date: 20071003
  Transmission Date: 20110219
  Serious: No
  Sender: FDA-Public Use
  Company Number: US-PFIZER INC-2007063253

PATIENT
  Sex: Male
  Weight: 109.32 kg

DRUGS (1)
  1. LIPITOR [Suspect]
     Indication: CORONARY ARTERY DISEASE
     Dates: start: 20030912, end: 20031217

REACTIONS (1)
  - AMNESIA [None]
